FAERS Safety Report 9471243 (Version 1)
Quarter: 2013Q3

REPORT INFORMATION
  Report Type: Spontaneous
  Country: US (occurrence: US)
  Receive Date: 20130822
  Receipt Date: 20130822
  Transmission Date: 20140515
  Serious: Yes (Other)
  Sender: FDA-Public Use
  Company Number: US-BRISTOL-MYERS SQUIBB COMPANY-19186477

PATIENT
  Age: 46 Year
  Sex: Male

DRUGS (6)
  1. YERVOY [Suspect]
     Dosage: 1ST TREATMENT ON MAY06,2ND ONJUN19,3RD ONJUL15.INJ?3 IPILIMUMABTREATMENTS
     Dates: start: 20130506
  2. NORCO [Concomitant]
  3. HYDROXYZINE [Concomitant]
  4. PREDNISONE [Concomitant]
  5. RANITIDINE HCL [Concomitant]
  6. OMEPRAZOLE [Concomitant]

REACTIONS (7)
  - Colitis [Unknown]
  - Gallbladder disorder [Unknown]
  - Rash [Unknown]
  - Eye irritation [Unknown]
  - Vitreous floaters [Unknown]
  - Visual impairment [Unknown]
  - Musculoskeletal stiffness [Unknown]
